FAERS Safety Report 25404562 (Version 1)
Quarter: 2025Q2

REPORT INFORMATION
  Report Type: Spontaneous
  Country: US (occurrence: US)
  Receive Date: 20250606
  Receipt Date: 20250606
  Transmission Date: 20250716
  Serious: No
  Sender: TARO
  Company Number: US-TARO PHARMACEUTICALS USA INC.-2024TAR01035

PATIENT
  Sex: Female

DRUGS (1)
  1. CICLOPIROX OLAMINE [Suspect]
     Active Substance: CICLOPIROX OLAMINE
     Indication: Tinea infection
     Dosage: UNK, OD, SMALL AMOUNT, BOTH HANDS AND SURFACE OF THE FEET
     Route: 061
     Dates: start: 202406, end: 20240709

REACTIONS (2)
  - Skin exfoliation [Recovered/Resolved]
  - Skin burning sensation [Recovered/Resolved]
